FAERS Safety Report 7717410-7 (Version None)
Quarter: 2011Q3

REPORT INFORMATION
  Report Type: 
  Country: None (occurrence: None)
  Receive Date: 20110823
  Receipt Date: 20110531
  Transmission Date: 20111222
  Serious: Yes (Hospitalization)
  Sender: FDA-Public Use
  Company Number: 20110516CINRY2016

PATIENT
  Age: 16 Year
  Sex: Female
  Weight: 80.5 kg

DRUGS (4)
  1. CINRYZE [Suspect]
     Indication: HEREDITARY ANGIOEDEMA
     Dosage: (1000 UNIT, 1 IN 3 D), INTRAVENOUS
     Route: 042
     Dates: start: 20101101
  2. CINRYZE [Suspect]
     Indication: PROPHYLAXIS
     Dosage: (1000 UNIT, 1 IN 3 D), INTRAVENOUS
     Route: 042
     Dates: start: 20101101
  3. NASONEX [Concomitant]
  4. QVAR [Concomitant]

REACTIONS (3)
  - HEREDITARY ANGIOEDEMA [None]
  - OEDEMA PERIPHERAL [None]
  - PAIN IN EXTREMITY [None]
